FAERS Safety Report 11180021 (Version 1)
Quarter: 2015Q2

REPORT INFORMATION
  Report Type: Spontaneous
  Country: IT (occurrence: IT)
  Receive Date: 20150611
  Receipt Date: 20150611
  Transmission Date: 20150821
  Serious: Yes (Other)
  Sender: FDA-Public Use
  Company Number: IT-TEVA-567584ACC

PATIENT
  Age: 78 Year
  Sex: Male

DRUGS (4)
  1. LEDERFOLIN - PFIZER ITALIA S.R.L. [Suspect]
     Active Substance: LEUCOVORIN CALCIUM
     Indication: RECTAL CANCER
     Dosage: 330 MG CYCLICAL
     Route: 042
     Dates: start: 20150305, end: 20150305
  2. ZALTRAP [Suspect]
     Active Substance: ZIV-AFLIBERCEPT
     Indication: RECTAL CANCER
     Dosage: 260 MG CYCLICAL; CONCENTRATE FOR SOLUTION FOR INFUSION
     Route: 042
     Dates: start: 20150305, end: 20150305
  3. FLUOROURACIL. [Suspect]
     Active Substance: FLUOROURACIL
     Indication: RECTAL CANCER
     Dosage: 4670 MG CYCLICAL
     Route: 042
     Dates: start: 20150305, end: 20150305
  4. IRINOTECAN [Suspect]
     Active Substance: IRINOTECAN
     Indication: RECTAL CANCER
     Dosage: 300 MG CYCLICAL
     Route: 042
     Dates: start: 20150305, end: 20150305

REACTIONS (2)
  - Neutropenia [Recovered/Resolved]
  - Bone pain [Recovered/Resolved]

NARRATIVE: CASE EVENT DATE: 20150323
